FAERS Safety Report 6726807-3 (Version None)
Quarter: 2010Q2

REPORT INFORMATION
  Report Type: 
  Country: None (occurrence: None)
  Receive Date: 20100516
  Receipt Date: 20100505
  Transmission Date: 20101027
  Serious: Yes (Hospitalization, Other)
  Sender: FDA-Public Use
  Company Number: US-JNJFOC-20100503238

PATIENT
  Age: 1 Year
  Sex: Male

DRUGS (4)
  1. MOTRIN [Suspect]
     Route: 065
  2. MOTRIN [Suspect]
     Indication: PYREXIA
     Route: 065
  3. TYLENOL (CAPLET) [Suspect]
     Route: 065
  4. TYLENOL (CAPLET) [Suspect]
     Indication: PYREXIA
     Route: 065

REACTIONS (4)
  - FEBRILE CONVULSION [None]
  - IRRITABILITY [None]
  - PRODUCT QUALITY ISSUE [None]
  - VOMITING [None]
